FAERS Safety Report 9863851 (Version 1)
Quarter: 2014Q1

REPORT INFORMATION
  Report Type: Spontaneous
  Country: US (occurrence: US)
  Receive Date: 20140203
  Receipt Date: 20140203
  Transmission Date: 20141002
  Serious: No
  Sender: FDA-Public Use
  Company Number: US-009507513-1401USA014576

PATIENT
  Age: 58 Year
  Sex: Female

DRUGS (2)
  1. LOSARTAN POTASSIUM (+) HYDROCHLOROTHIAZIDE [Suspect]
     Indication: HYPERTENSION
     Dosage: 25 MG/100 MG ONCE DAILY
     Route: 048
     Dates: start: 201301, end: 2013
  2. POTASSIUM SODIUM HYDROGEN CITRATE [Concomitant]

REACTIONS (2)
  - Hypertension [Recovered/Resolved]
  - Dizziness [Recovered/Resolved]
